FAERS Safety Report 10199701 (Version 1)
Quarter: 2014Q2

REPORT INFORMATION
  Report Type: Spontaneous
  Country: US (occurrence: US)
  Receive Date: 20140527
  Receipt Date: 20140527
  Transmission Date: 20141212
  Serious: No
  Sender: FDA-Public Use
  Company Number: US-PFIZER INC-2014142134

PATIENT
  Sex: Female

DRUGS (5)
  1. LYRICA [Suspect]
     Indication: SPINAL COLUMN STENOSIS
     Dosage: 50 MG, 2X/DAY
  2. LYRICA [Suspect]
     Indication: THERMAL BURN
     Dosage: 75 MG, 2X/DAY
  3. LYRICA [Suspect]
     Indication: HYPOAESTHESIA
     Dosage: 100 MG, 2X/DAY
  4. LYRICA [Suspect]
     Dosage: 100 MG, 3X/DAY
  5. LYRICA [Suspect]
     Dosage: 100 MG, 2X/DAY
     Dates: start: 20140521

REACTIONS (6)
  - Ear discomfort [Not Recovered/Not Resolved]
  - Hearing impaired [Not Recovered/Not Resolved]
  - Dry eye [Not Recovered/Not Resolved]
  - Chapped lips [Not Recovered/Not Resolved]
  - Feeling abnormal [Unknown]
  - Drug intolerance [Unknown]
